FAERS Safety Report 22017695 (Version 1)
Quarter: 2023Q1

REPORT INFORMATION
  Report Type: Spontaneous
  Country: US (occurrence: None)
  Receive Date: 20230217
  Receipt Date: 20230217
  Transmission Date: 20230418
  Serious: Yes (Hospitalization)
  Sender: FDA-Public Use
  Company Number: None

PATIENT
  Sex: Female

DRUGS (10)
  1. NUCALA [Suspect]
     Active Substance: MEPOLIZUMAB
     Indication: Cystic fibrosis lung
     Dosage: FREQUENCY : MONTHLY;?
     Route: 058
  2. AMLODIPINE TAB [Concomitant]
  3. CYMBALTA CAP [Concomitant]
  4. DEPLIN CAP [Concomitant]
  5. LAMICTAL XR TAB [Concomitant]
  6. LEVALUTEROL NEB [Concomitant]
  7. LORAZEPAM TAB [Concomitant]
  8. SEROQUEL TAB [Concomitant]
  9. STOOL SOFTNR CAP [Concomitant]
  10. SYMBICORT AER [Concomitant]

REACTIONS (1)
  - Hospitalisation [None]
